FAERS Safety Report 12277504 (Version 4)
Quarter: 2017Q2

REPORT INFORMATION
  Report Type: Spontaneous
  Country: US (occurrence: US)
  Receive Date: 20160418
  Receipt Date: 20170412
  Transmission Date: 20170830
  Serious: No
  Sender: FDA-Public Use
  Company Number: US-ACTELION PHARMACEUTICALS US, INC.-A-NJ2016-134321

PATIENT
  Age: 65 Year
  Sex: Female

DRUGS (2)
  1. TREPROSTINIL DIOLAMIN [Concomitant]
     Active Substance: TREPROSTINIL DIOLAMINE
     Dosage: 5.75 MG, TID
  2. OPSUMIT [Suspect]
     Active Substance: MACITENTAN
     Indication: PULMONARY HYPERTENSION
     Dosage: 10 MG, QD
     Route: 048
     Dates: start: 20160302

REACTIONS (8)
  - Upper respiratory tract infection [Unknown]
  - Seasonal allergy [Unknown]
  - Bronchitis [Not Recovered/Not Resolved]
  - Headache [Unknown]
  - Pain in jaw [Unknown]
  - Sinusitis [Unknown]
  - Sluggishness [Unknown]
  - Dysgeusia [Unknown]

NARRATIVE: CASE EVENT DATE: 20160318
